FAERS Safety Report 8138387-9 (Version None)
Quarter: 2012Q1

REPORT INFORMATION
  Report Type: 
  Country: None (occurrence: None)
  Receive Date: 20120215
  Receipt Date: 20120131
  Transmission Date: 20120608
  Serious: Yes (Death, Hospitalization, Other)
  Sender: FDA-Public Use
  Company Number: GR-ROCHE-1036082

PATIENT
  Sex: Female
  Weight: 111 kg

DRUGS (6)
  1. NPLATE [Suspect]
     Indication: AUTOIMMUNE THROMBOCYTOPENIA
     Dosage: 94 UG TO 1000 UG
     Route: 058
     Dates: start: 20100804, end: 20101012
  2. DEXAMETH [Suspect]
     Indication: AUTOIMMUNE THROMBOCYTOPENIA
     Dates: start: 20101112, end: 20101114
  3. MABTHERA [Suspect]
     Indication: AUTOIMMUNE THROMBOCYTOPENIA
     Route: 042
     Dates: start: 20101008, end: 20101029
  4. MEDROL [Suspect]
     Indication: AUTOIMMUNE THROMBOCYTOPENIA
     Route: 048
     Dates: start: 20100517, end: 20100925
  5. ONCOVIN [Concomitant]
     Dates: start: 20100805
  6. CYCLOPHOSPHAMIDE [Suspect]
     Indication: LYMPHOMA
     Route: 042
     Dates: start: 20100810, end: 20100810

REACTIONS (5)
  - SUBDIAPHRAGMATIC ABSCESS [None]
  - SEPSIS [None]
  - GASTRIC HAEMORRHAGE [None]
  - THERAPEUTIC RESPONSE DECREASED [None]
  - HAEMORRHAGE [None]
